FAERS Safety Report 13936269 (Version 1)
Quarter: 2017Q3

REPORT INFORMATION
  Report Type: Spontaneous
  Country: US (occurrence: None)
  Receive Date: 20170905
  Receipt Date: 20170905
  Transmission Date: 20171127
  Serious: Yes (Hospitalization)
  Sender: FDA-Public Use
  Company Number: None

PATIENT
  Age: 63 Month
  Sex: Female
  Weight: 46.27 kg

DRUGS (2)
  1. SUPREP BOWEL PREP [Suspect]
     Active Substance: MAGNESIUM SULFATE\POTASSIUM SULFATE\SODIUM SULFATE
     Indication: COLONOSCOPY
     Dates: start: 20170730, end: 20170731
  2. ADVIL [Concomitant]
     Active Substance: IBUPROFEN

REACTIONS (8)
  - Hypersensitivity [None]
  - Retching [None]
  - Face oedema [None]
  - Product taste abnormal [None]
  - Abdominal discomfort [None]
  - Tongue oedema [None]
  - Urticaria [None]
  - Dysphagia [None]

NARRATIVE: CASE EVENT DATE: 20170801
